FAERS Safety Report 4289245-1 (Version None)
Quarter: 2004Q1

REPORT INFORMATION
  Report Type: 
  Country: None (occurrence: None)
  Receive Date: 20040203
  Receipt Date: 20000328
  Transmission Date: 20041129
  Serious: Yes (Other)
  Sender: FDA-Public Use
  Company Number: 2000-044

PATIENT
  Age: 17 Year
  Sex: Female

DRUGS (1)
  1. DORYX [Suspect]
     Indication: ACNE
     Dosage: 50 MG QD ORAL
     Route: 048
     Dates: start: 19970801, end: 19990501

REACTIONS (2)
  - ALOPECIA [None]
  - PERIPHERAL VASCULAR DISORDER [None]
